FAERS Safety Report 7134229-9 (Version None)
Quarter: 2010Q4

REPORT INFORMATION
  Report Type: 
  Country: None (occurrence: None)
  Receive Date: 20101117
  Receipt Date: 20101029
  Transmission Date: 20110411
  Serious: Yes (Hospitalization)
  Sender: FDA-Public Use
  Company Number: 2010-3720

PATIENT
  Age: 67 Year
  Sex: Female

DRUGS (12)
  1. APO-GO AMPOULES (APO-GO) (APOMORPHINE HYDROCHLORIDE) (APOMORPHINE HYDR [Suspect]
     Indication: PARKINSON'S DISEASE
     Dosage: 6MG/H (1.2ML/H) (CONTINUOUS INJECTION FROM 7AM TO 10PM), SUBCUTANEOUS
     Route: 058
     Dates: start: 20100816
  2. LEVODOPA RETARD (LEVODOPA) [Concomitant]
  3. SEROQUEL PROLONG (QUETIAPINE) [Concomitant]
  4. MADOPAR LT (MADOPAR /00349201/) [Concomitant]
  5. AMANTADINE HCL [Concomitant]
  6. CLONAZEPAM [Concomitant]
  7. EFORTIL (ETILEFRINE HYDROCHLORIDE) [Concomitant]
  8. NULYTELY [Concomitant]
  9. DOMPERIDON (DOMPERIDONE) [Concomitant]
  10. EMSELEX (DARIFENACIN HYDROBROMIDE) [Concomitant]
  11. ENTACAPONE [Concomitant]
  12. MAGNESIUM VERLA EFFERVESCENT (MAGNESIUM VERLA /00648601/) [Concomitant]

REACTIONS (3)
  - ABSCESS [None]
  - INJECTION SITE INFLAMMATION [None]
  - INTRA-ABDOMINAL HAEMATOMA [None]
